FAERS Safety Report 4512932-4 (Version None)
Quarter: 2004Q4

REPORT INFORMATION
  Report Type: 
  Country: None (occurrence: None)
  Receive Date: 20041124
  Receipt Date: 20041029
  Transmission Date: 20050328
  Serious: Yes (Death)
  Sender: FDA-Public Use
  Company Number: 0410022

PATIENT
  Age: 46 Year
  Sex: Male
  Weight: 0.4536 kg

DRUGS (1)
  1. ORFADIN [Suspect]
     Indication: GLIOBLASTOMA MULTIFORME
     Dosage: 10 MILLIGRAM ONCE DAILY ORAL
     Route: 048
     Dates: start: 20040915, end: 20040930

REACTIONS (1)
  - DEATH [None]
